FAERS Safety Report 6769347-8 (Version None)
Quarter: 2010Q2

REPORT INFORMATION
  Report Type: 
  Country: None (occurrence: None)
  Receive Date: 20100607
  Receipt Date: 20100525
  Transmission Date: 20101027
  Serious: Yes (Hospitalization)
  Sender: FDA-Public Use
  Company Number: B0658127A

PATIENT
  Sex: Female

DRUGS (4)
  1. FLUTICASONE PROPIONATE [Suspect]
     Indication: ASTHMA
     Dosage: 250 MCG/TWICE PER DAY / INHALED
     Dates: start: 20010901, end: 20040101
  2. FLUTICASONE PROPIONATE+SALMETEROL XINAFOATE UNSPECIFIED INHA (FLUTICAS [Suspect]
     Indication: ASTHMA
     Dosage: 125 MCG/TWICE PER DAY / INHALED
     Dates: start: 20040101, end: 20071101
  3. MONTELUKAST SODIUM [Concomitant]
  4. CORTICOSTEROID [Concomitant]

REACTIONS (8)
  - ADRENAL SUPPRESSION [None]
  - ASTHMA [None]
  - BLOOD CORTISOL DECREASED [None]
  - CONDITION AGGRAVATED [None]
  - GASTROENTERITIS [None]
  - HYPOGLYCAEMIC SEIZURE [None]
  - NASOPHARYNGITIS [None]
  - UPPER RESPIRATORY TRACT INFECTION [None]
